FAERS Safety Report 10448198 (Version 2)
Quarter: 2014Q4

REPORT INFORMATION
  Report Type: Spontaneous
  Country: JP (occurrence: JP)
  Receive Date: 20140911
  Receipt Date: 20141118
  Transmission Date: 20150528
  Serious: Yes (Other)
  Sender: FDA-Public Use
  Company Number: JP-GLAXOSMITHKLINE-B1032102A

PATIENT

DRUGS (1)
  1. HYCAMTIN [Suspect]
     Active Substance: TOPOTECAN HYDROCHLORIDE
     Indication: OVARIAN CANCER
     Dosage: UNK
     Route: 042
     Dates: start: 20140804, end: 20140809

REACTIONS (1)
  - Ileus [Recovering/Resolving]

NARRATIVE: CASE EVENT DATE: 20140817
